FAERS Safety Report 9601979 (Version 11)
Quarter: 2015Q1

REPORT INFORMATION
  Report Type: Spontaneous
  Country: IE (occurrence: IE)
  Receive Date: 20131007
  Receipt Date: 20150303
  Transmission Date: 20150721
  Serious: Yes (Hospitalization, Other)
  Sender: FDA-Public Use
  Company Number: PHFR2013IE005076

PATIENT
  Age: 60 Year
  Sex: Male
  Weight: 99.9 kg

DRUGS (5)
  1. CLOZARIL [Suspect]
     Active Substance: CLOZAPINE
     Dosage: UNK
     Route: 048
  2. PROCYCLIDINE [Concomitant]
     Active Substance: PROCYCLIDINE
     Indication: PRODUCT USED FOR UNKNOWN INDICATION
     Dosage: 5 MG, BID
     Route: 048
  3. FLUOXETINE [Concomitant]
     Active Substance: FLUOXETINE\FLUOXETINE HYDROCHLORIDE
     Indication: DEPRESSION
     Dosage: 20 MG
     Route: 048
     Dates: start: 2009
  4. PAROXETINE [Concomitant]
     Active Substance: PAROXETINE\PAROXETINE HYDROCHLORIDE
     Indication: DEPRESSION
     Dosage: 20 MG
     Route: 065
  5. CLOZARIL [Suspect]
     Active Substance: CLOZAPINE
     Indication: SCHIZOPHRENIA
     Dosage: 525 MG
     Route: 048
     Dates: start: 20030123

REACTIONS (17)
  - C-reactive protein increased [Recovered/Resolved]
  - Haemoglobin decreased [Unknown]
  - Lower respiratory tract infection [Recovered/Resolved]
  - White blood cell count increased [Not Recovered/Not Resolved]
  - Neutrophil count increased [Unknown]
  - Hypercholesterolaemia [Recovered/Resolved]
  - Cardiac failure congestive [Recovering/Resolving]
  - Type 2 diabetes mellitus [Recovering/Resolving]
  - Blood urea increased [Recovered/Resolved]
  - Abdominal distension [Recovering/Resolving]
  - Oedema peripheral [Recovered/Resolved]
  - Blood creatine increased [Recovered/Resolved]
  - Differential white blood cell count abnormal [Recovered/Resolved]
  - Blood alkaline phosphatase increased [Unknown]
  - Ejection fraction decreased [Unknown]
  - Dyspnoea [Recovered/Resolved]
  - Hypertension [Recovering/Resolving]

NARRATIVE: CASE EVENT DATE: 20130904
